FAERS Safety Report 21436715 (Version 5)
Quarter: 2023Q2

REPORT INFORMATION
  Report Type: Report from Study
  Country: CA (occurrence: CA)
  Receive Date: 20221010
  Receipt Date: 20230413
  Transmission Date: 20230721
  Serious: Yes (Other)
  Sender: FDA-Public Use
  Company Number: CA-NOVARTISPH-NVSC2022CA226142

PATIENT
  Age: 48 Year
  Sex: Female

DRUGS (1)
  1. ERELZI [Suspect]
     Active Substance: ETANERCEPT-SZZS
     Indication: Rheumatoid arthritis
     Dosage: 50 MG, QW
     Route: 058
     Dates: start: 20220603

REACTIONS (8)
  - Suicidal ideation [Unknown]
  - Depression [Unknown]
  - Fatigue [Unknown]
  - Illness [Unknown]
  - Condition aggravated [Unknown]
  - Malaise [Unknown]
  - Dizziness [Unknown]
  - Hypertransaminasaemia [Unknown]
